FAERS Safety Report 20798553 (Version 1)
Quarter: 2022Q2

REPORT INFORMATION
  Report Type: Spontaneous
  Country: US (occurrence: None)
  Receive Date: 20220507
  Receipt Date: 20220507
  Transmission Date: 20220720
  Serious: No
  Sender: FDA-Public Use
  Company Number: 2022A158272

PATIENT
  Sex: Male
  Weight: 77.6 kg

DRUGS (1)
  1. BRILINTA [Suspect]
     Active Substance: TICAGRELOR
     Indication: Cerebrovascular accident
     Route: 048
     Dates: start: 20220124

REACTIONS (2)
  - Respiratory rate increased [Unknown]
  - Dyspnoea [Unknown]
